FAERS Safety Report 13241764 (Version 2)
Quarter: 2017Q2

REPORT INFORMATION
  Report Type: Spontaneous
  Country: US (occurrence: US)
  Receive Date: 20170217
  Receipt Date: 20170404
  Transmission Date: 20170830
  Serious: No
  Sender: FDA-Public Use
  Company Number: US-PFIZER INC-2017064343

PATIENT
  Sex: Female

DRUGS (1)
  1. ADVIL SINUS CONGESTION AND PAIN [Suspect]
     Active Substance: IBUPROFEN\PHENYLEPHRINE HYDROCHLORIDE
     Indication: PYREXIA
     Dosage: UNK, 2X/DAY (EVERY 12 HRS)

REACTIONS (1)
  - Drug effect incomplete [Unknown]
